FAERS Safety Report 4941665-5 (Version None)
Quarter: 2006Q1

REPORT INFORMATION
  Report Type: 
  Country: None (occurrence: None)
  Receive Date: 20060313
  Receipt Date: 20060302
  Transmission Date: 20060701
  Serious: Yes (Other)
  Sender: FDA-Public Use
  Company Number: JP-ROCHE-439270

PATIENT
  Age: 52 Year
  Sex: Female

DRUGS (6)
  1. TAMIFLU [Suspect]
     Indication: INFLUENZA
     Route: 048
     Dates: start: 20060208, end: 20060208
  2. TAMIFLU [Suspect]
     Route: 048
     Dates: start: 20060209, end: 20060209
  3. TAMIFLU [Suspect]
     Route: 048
     Dates: start: 20060210, end: 20060210
  4. MEDICON [Concomitant]
     Dosage: DOSE FORM REPORTED AS ORAL FORMULATION (NOT OTHERWISE SPECIFIED)
     Route: 048
     Dates: end: 20060209
  5. ZESULAN [Concomitant]
     Dosage: DOSE FORM REPORTED AS ORAL FORMULATION (NOT OTHERWISE SPECIFIED)
     Route: 048
     Dates: end: 20060209
  6. LOXOPROFEN SODIUM [Concomitant]
     Dosage: DOSE FORM REPORTED AS ORAL FORMULATION (NOT OTHERWISE SPECIFIED). TRADE NAME ROSEOL
     Route: 048
     Dates: end: 20060209

REACTIONS (1)
  - ENTEROCOLITIS HAEMORRHAGIC [None]
